FAERS Safety Report 5735097-X (Version None)
Quarter: 2008Q2

REPORT INFORMATION
  Report Type: 
  Country: None (occurrence: None)
  Receive Date: 20080512
  Receipt Date: 20080507
  Transmission Date: 20081010
  Serious: Yes (Death)
  Sender: FDA-Public Use
  Company Number: NO-ASTRAZENECA-2008SE02314

PATIENT
  Age: 40 Year
  Sex: Male

DRUGS (1)
  1. SEROQUEL COPYFARM [Suspect]
     Indication: SCHIZOPHRENIA
     Route: 048

REACTIONS (1)
  - INTENTIONAL OVERDOSE [None]
